FAERS Safety Report 7551227-1 (Version None)
Quarter: 2011Q2

REPORT INFORMATION
  Report Type: 
  Country: None (occurrence: None)
  Receive Date: 20110616
  Receipt Date: 20110606
  Transmission Date: 20111010
  Serious: Yes (Other)
  Sender: FDA-Public Use
  Company Number: PHHY2011BR17360

PATIENT
  Sex: Female

DRUGS (4)
  1. ATACAND HCT [Concomitant]
     Dosage: 16/12.5 MG
  2. RASILEZ HCT [Suspect]
     Dosage: 150/12.5 MG
  3. CLAVIXS [Concomitant]
     Dosage: 75 MG, UNK
  4. CRESTOR [Concomitant]
     Dosage: 20 MG, UNK

REACTIONS (1)
  - ARTERIAL OCCLUSIVE DISEASE [None]
